FAERS Safety Report 20745545 (Version 1)
Quarter: 2022Q2

REPORT INFORMATION
  Report Type: Spontaneous
  Country: DE (occurrence: DE)
  Receive Date: 20220425
  Receipt Date: 20220425
  Transmission Date: 20220720
  Serious: Yes (Hospitalization)
  Sender: FDA-Public Use
  Company Number: DE-PFIZER INC-202200365894

PATIENT
  Age: 68 Year
  Sex: Male
  Weight: 77 kg

DRUGS (11)
  1. CYTARABINE [Suspect]
     Active Substance: CYTARABINE
     Indication: Product used for unknown indication
     Dosage: 200 MILLIGRAM
     Dates: start: 20170320
  2. IDARUBICIN [Suspect]
     Active Substance: IDARUBICIN
     Indication: Product used for unknown indication
     Dosage: 24 MILLIGRAM
     Dates: start: 20170320
  3. ETOPOSIDE [Suspect]
     Active Substance: ETOPOSIDE
     Indication: Product used for unknown indication
     Dosage: 200 UNK
     Dates: start: 20170320
  4. TRETINOIN [Suspect]
     Active Substance: TRETINOIN
     Indication: Product used for unknown indication
     Dosage: 30 MILLIGRAM, TID
     Dates: start: 20170325
  5. CITALOPRAM [Concomitant]
     Active Substance: CITALOPRAM HYDROBROMIDE
     Indication: Depression
     Dosage: 20 UNK
     Route: 048
     Dates: start: 20170424, end: 20170502
  6. BISOPROLOL [Concomitant]
     Active Substance: BISOPROLOL
     Indication: Tachycardia
     Dosage: 10 MILLIGRAM, QD (5 MG, 2X/DAY)
     Route: 048
     Dates: start: 20170424, end: 20170428
  7. BISOPROLOL [Concomitant]
     Active Substance: BISOPROLOL
     Indication: Atrial fibrillation
  8. LENOGRASTIM [Concomitant]
     Active Substance: LENOGRASTIM
     Indication: Haematopoietic stem cell mobilisation
     Dosage: UNK, 34 MILL
     Route: 058
     Dates: start: 20170426, end: 20170429
  9. BUTYLSCOPOLAMINE BROMIDE [Concomitant]
     Active Substance: BUTYLSCOPOLAMINE BROMIDE
     Indication: Muscle spasms
     Dosage: UNK, 2X1
     Route: 042
     Dates: start: 20170429, end: 20170502
  10. BROMAZEPAM [Concomitant]
     Active Substance: BROMAZEPAM
     Indication: Restlessness
     Dosage: 6 MILLIGRAM, PRN AS NEEDED
     Route: 048
     Dates: start: 20170424
  11. PANTOPRAZOLE SODIUM [Concomitant]
     Active Substance: PANTOPRAZOLE SODIUM
     Indication: Gastritis
     Dosage: 40 MILLIGRAM
     Route: 048
     Dates: start: 20170424, end: 20170502

REACTIONS (2)
  - Pneumonia [Recovered/Resolved]
  - Systemic inflammatory response syndrome [Recovered/Resolved]

NARRATIVE: CASE EVENT DATE: 20170424
